FAERS Safety Report 7396612-6 (Version None)
Quarter: 2011Q2

REPORT INFORMATION
  Report Type: 
  Country: None (occurrence: None)
  Receive Date: 20110406
  Receipt Date: 20110322
  Transmission Date: 20111010
  Serious: Yes (Other)
  Sender: FDA-Public Use
  Company Number: PHHY2011BR25542

PATIENT
  Sex: Male

DRUGS (1)
  1. LESCOL XL [Suspect]
     Dosage: 80 MG, UNK
     Route: 048

REACTIONS (2)
  - CARDIAC DISORDER [None]
  - INTERVERTEBRAL DISC PROTRUSION [None]
